FAERS Safety Report 5572059-X (Version None)
Quarter: 2007Q4

REPORT INFORMATION
  Report Type: 
  Country: None (occurrence: None)
  Receive Date: 20071221
  Receipt Date: 20071213
  Transmission Date: 20080405
  Serious: Yes (Hospitalization)
  Sender: FDA-Public Use
  Company Number: AU-ABBOTT-07P-008-0429956-00

PATIENT
  Sex: Male

DRUGS (3)
  1. KALETRA [Suspect]
     Indication: HIV INFECTION
     Dosage: 400/100MG, 2 IN 1 D/800/200 MG, 1 IN 1 D
     Route: 048
     Dates: start: 20060730
  2. MS CONTIN SR [Concomitant]
     Indication: ANALGESIA
  3. TRUVADA [Concomitant]
     Indication: DRUG USE FOR UNKNOWN INDICATION
     Dates: start: 20060607

REACTIONS (2)
  - FALL [None]
  - HUMERUS FRACTURE [None]
